FAERS Safety Report 15136013 (Version 1)
Quarter: 2018Q3

REPORT INFORMATION
  Report Type: Spontaneous
  Country: IT (occurrence: IT)
  Receive Date: 20180712
  Receipt Date: 20180712
  Transmission Date: 20181010
  Serious: Yes (Hospitalization)
  Sender: FDA-Public Use
  Company Number: IT-MYLANLABS-2018M1049757

PATIENT
  Age: 42 Year
  Sex: Male

DRUGS (1)
  1. TRIAZOLAM. [Suspect]
     Active Substance: TRIAZOLAM
     Indication: PRODUCT USED FOR UNKNOWN INDICATION
     Route: 065

REACTIONS (10)
  - Toxicity to various agents [Recovered/Resolved]
  - Somnolence [Recovered/Resolved]
  - Bradyphrenia [Recovered/Resolved]
  - Dysarthria [Recovered/Resolved]
  - Drug abuse [Recovered/Resolved]
  - Disinhibition [Recovered/Resolved]
  - Disorientation [Recovered/Resolved]
  - Confusional state [Recovered/Resolved]
  - Stupor [Recovered/Resolved]
  - Hypokinesia [Recovered/Resolved]
